FAERS Safety Report 5632229-9 (Version None)
Quarter: 2008Q1

REPORT INFORMATION
  Report Type: 
  Country: None (occurrence: None)
  Receive Date: 20080212
  Receipt Date: 20080204
  Transmission Date: 20080703
  Serious: Yes (Hospitalization)
  Sender: FDA-Public Use
  Company Number: 008-C5013-07091457

PATIENT
  Age: 68 Year
  Sex: Male
  Weight: 94 kg

DRUGS (7)
  1. CC-5013 (LENALIDOMIDE) (CAPSULES) [Suspect]
     Indication: MULTIPLE MYELOMA
     Dosage: 25 MG, FOR 21 DAYS, ORAL
     Route: 048
     Dates: start: 20070425, end: 20070927
  2. DEXAMETHASONE TAB [Suspect]
     Indication: MULTIPLE MYELOMA
     Dosage: 40 MG, DAY 1-4, ORAL
     Route: 048
     Dates: start: 20070425
  3. BONEFOS (CLODRONATE DISODIUM) (TABLETS) [Concomitant]
  4. LIPITOR [Concomitant]
  5. MAGMIN (MAGNESIUM ASPARTATE) (TABLETS) [Concomitant]
  6. SLOW-K [Concomitant]
  7. LASIX [Concomitant]

REACTIONS (7)
  - CHEST PAIN [None]
  - MUSCULOSKELETAL DISORDER [None]
  - NEUTROPHIL COUNT ABNORMAL [None]
  - PLATELET COUNT DECREASED [None]
  - PLEURITIC PAIN [None]
  - RED BLOOD CELL COUNT DECREASED [None]
  - WHITE BLOOD CELL COUNT DECREASED [None]
